FAERS Safety Report 9924895 (Version 1)
Quarter: 2014Q1

REPORT INFORMATION
  Report Type: Spontaneous
  Country: US (occurrence: US)
  Receive Date: 20140226
  Receipt Date: 20140226
  Transmission Date: 20141002
  Serious: Yes (Other)
  Sender: FDA-Public Use
  Company Number: US-BRISTOL-MYERS SQUIBB COMPANY-20244083

PATIENT
  Age: 65 Year
  Sex: Male

DRUGS (2)
  1. ELIQUIS [Suspect]
  2. COUMADIN [Suspect]

REACTIONS (2)
  - Central nervous system haemorrhage [Unknown]
  - Nervous system disorder [Unknown]
